FAERS Safety Report 24089032 (Version 2)
Quarter: 2024Q3

REPORT INFORMATION
  Report Type: Report from Study
  Country: CA (occurrence: CA)
  Receive Date: 20240715
  Receipt Date: 20240902
  Transmission Date: 20241016
  Serious: Yes (Death)
  Sender: ABBVIE
  Company Number: CA-ABBVIE-5839360

PATIENT
  Sex: Female

DRUGS (1)
  1. RINVOQ [Suspect]
     Active Substance: UPADACITINIB
     Indication: Rheumatoid arthritis
     Route: 048
     Dates: start: 20210121, end: 20240710

REACTIONS (1)
  - Bacterial infection [Fatal]
